FAERS Safety Report 8216673-1 (Version None)
Quarter: 2012Q1

REPORT INFORMATION
  Report Type: 
  Country: None (occurrence: None)
  Receive Date: 20120316
  Receipt Date: 20120307
  Transmission Date: 20120608
  Serious: Yes (Other)
  Sender: FDA-Public Use
  Company Number: JP-VERTEX PHARMACEUTICALS INC.-AE-2012-003530

PATIENT
  Age: 53 Year
  Sex: Male

DRUGS (11)
  1. CLARITIN [Concomitant]
     Route: 048
  2. REBETOL [Concomitant]
     Indication: HEPATITIS C
     Route: 048
     Dates: start: 20120118
  3. REBETOL [Concomitant]
     Route: 048
     Dates: start: 20120228
  4. PITAVASTATIN [Concomitant]
  5. FEROTYM [Concomitant]
  6. TELAVIC (TELAPREVIR) [Suspect]
     Route: 048
     Dates: start: 20120123
  7. REBETOL [Concomitant]
     Route: 048
     Dates: start: 20120213
  8. REBETOL [Concomitant]
     Route: 048
     Dates: start: 20120220
  9. TELAVIC (TELAPREVIR) [Suspect]
     Indication: HEPATITIS C
     Route: 048
     Dates: start: 20120118, end: 20120120
  10. PEGASYS [Concomitant]
     Indication: HEPATITIS C
     Route: 058
  11. ETHYL ICOSAPENTATE [Concomitant]
     Route: 048

REACTIONS (1)
  - RENAL DISORDER [None]
